FAERS Safety Report 4786527-1 (Version None)
Quarter: 2005Q3

REPORT INFORMATION
  Report Type: 
  Country: None (occurrence: None)
  Receive Date: 20050927
  Receipt Date: 20050713
  Transmission Date: 20060218
  Serious: No
  Sender: FDA-Public Use
  Company Number: USA0507102988

PATIENT
  Age: 24 Year
  Sex: Female

DRUGS (2)
  1. STRATTERA [Suspect]
     Dosage: 80 MG
     Dates: start: 20041101, end: 20050101
  2. CONTRACEPTIVE PILL (ORAL CONTRACEPTIVE NOS) [Concomitant]

REACTIONS (2)
  - NIGHTMARE [None]
  - SLEEP WALKING [None]
